FAERS Safety Report 8587905 (Version 2)
Quarter: 2012Q4

REPORT INFORMATION
  Report Type: Report from Study
  Country: US (occurrence: US)
  Receive Date: 20120531
  Receipt Date: 20121030
  Transmission Date: 20130627
  Serious: Yes (Death, Life-Threatening, Hospitalization)
  Sender: FDA-Public Use
  Company Number: US-PFIZER INC-2010000567

PATIENT
  Age: 51 Year
  Sex: Female
  Weight: 143 kg

DRUGS (24)
  1. DALTEPARIN SODIUM [Suspect]
     Indication: PULMONARY EMBOLISM
     Dosage: 18000 IU, 1x/day
     Route: 058
     Dates: start: 20091022
  2. DALTEPARIN SODIUM [Suspect]
     Indication: DEEP VEIN THROMBOSIS
  3. MORPHINE SULFATE [Suspect]
     Indication: PAIN
     Dosage: UNK
     Route: 042
     Dates: start: 20100105
  4. MULTIVITAMINS [Concomitant]
     Indication: SUPPLEMENTATION THERAPY
     Dosage: 1 DF, 1x/day
     Route: 048
     Dates: start: 20061128
  5. POTASSIUM [Concomitant]
     Indication: SUPPLEMENTATION THERAPY
     Dosage: 20 mEq, 1x/day
     Route: 048
     Dates: start: 20061222
  6. ACIPHEX [Concomitant]
     Indication: GASTROOESOPHAGEAL REFLUX DISEASE
     Dosage: 2 mg, 1x/day
     Route: 048
     Dates: start: 20070418
  7. SPIRIVA [Concomitant]
     Indication: ASTHMA
     Dosage: 1 DF, 1x/day
     Route: 055
     Dates: start: 20061128
  8. SPIRIVA [Concomitant]
     Indication: CHRONIC OBSTRUCTIVE PULMONARY DISEASE
  9. CYMBALTA [Concomitant]
     Indication: DEPRESSION
     Dosage: 100 mg, daily
     Route: 048
     Dates: start: 20081211
  10. DIFLUCAN [Concomitant]
     Indication: CANDIDIASIS
     Dosage: 60 mg, as needed
     Route: 048
     Dates: start: 20091023
  11. FOLIC ACID [Concomitant]
     Dosage: 1 mg, 1x/day
     Route: 048
     Dates: start: 20091023
  12. FUROSEMIDE [Concomitant]
     Indication: OEDEMA
     Dosage: 40 mg, as needed
     Route: 048
     Dates: start: 20061128
  13. FUROSEMIDE [Concomitant]
     Indication: HYPERKALAEMIA
  14. GABAPENTIN [Concomitant]
     Indication: PAIN
     Dosage: 600 mg, 2x/day
     Route: 048
     Dates: start: 20061128
  15. LACTULOSE [Concomitant]
     Indication: CONSTIPATION
     Dosage: UNK
     Route: 048
     Dates: start: 20091004
  16. MILK OF MAGNESIA [Concomitant]
     Indication: CONSTIPATION
     Dosage: UNK
     Route: 048
     Dates: start: 20091004
  17. MONTELUKAST [Concomitant]
     Indication: CHRONIC OBSTRUCTIVE PULMONARY DISEASE
     Dosage: 10 mg, daily
     Route: 048
     Dates: start: 20081201
  18. MONTELUKAST [Concomitant]
     Indication: ASTHMA
  19. SALINEX NASAL MIST [Concomitant]
     Indication: NASAL DISCOMFORT
     Dosage: UNK
     Route: 045
     Dates: start: 20070803
  20. ALBUTEROL [Concomitant]
     Indication: CHRONIC OBSTRUCTIVE PULMONARY DISEASE
     Dosage: UNK
     Route: 055
     Dates: start: 20041027
  21. ALBUTEROL [Concomitant]
     Indication: ASTHMA
  22. SYMBICORT [Concomitant]
     Indication: CHRONIC OBSTRUCTIVE PULMONARY DISEASE
     Dosage: UNK
     Route: 055
     Dates: start: 20081211
  23. SYMBICORT [Concomitant]
     Indication: ASTHMA
  24. CLONAZEPAM [Concomitant]
     Indication: ANXIETY
     Dosage: 0.5 mg, as needed
     Route: 048

REACTIONS (7)
  - Disease progression [Fatal]
  - Bronchioloalveolar carcinoma [Fatal]
  - Stupor [Fatal]
  - Hypoxia [Fatal]
  - Pneumonia [Recovering/Resolving]
  - Hypercalcaemia [Not Recovered/Not Resolved]
  - Acute respiratory failure [Recovering/Resolving]
